FAERS Safety Report 5029300-1 (Version None)
Quarter: 2006Q2

REPORT INFORMATION
  Report Type: 
  Country: None (occurrence: None)
  Receive Date: 20060614
  Receipt Date: 20060601
  Transmission Date: 20061013
  Serious: Yes (Hospitalization)
  Sender: FDA-Public Use
  Company Number: A-US2006-12403

PATIENT
  Age: 81 Year
  Sex: Female

DRUGS (8)
  1. TRACLEER [Suspect]
     Indication: PULMONARY HYPERTENSION
     Dosage: SEE IMAGE
     Route: 048
     Dates: start: 20050615, end: 20050802
  2. TRACLEER [Suspect]
     Indication: PULMONARY HYPERTENSION
     Dosage: SEE IMAGE
     Route: 048
     Dates: start: 20050803
  3. SPIRIVA [Concomitant]
  4. REMODULIN [Concomitant]
  5. PAXIL [Concomitant]
  6. EFFEXOR [Concomitant]
  7. RISPERIDONE [Concomitant]
  8. WELLBUTRIN [Concomitant]

REACTIONS (5)
  - ANHEDONIA [None]
  - DEPRESSION [None]
  - FATIGUE [None]
  - OVERDOSE [None]
  - SUICIDAL IDEATION [None]
